FAERS Safety Report 4428551-4 (Version None)
Quarter: 2004Q3

REPORT INFORMATION
  Report Type: 
  Country: None (occurrence: None)
  Receive Date: 20040816
  Receipt Date: 20040806
  Transmission Date: 20050211
  Serious: Yes (Other)
  Sender: FDA-Public Use
  Company Number: HQWYE135710AUG04

PATIENT
  Sex: Female

DRUGS (5)
  1. PREMPRO [Suspect]
  2. ESTRACE [Suspect]
  3. ESTROGENS (ESTROGENS) [Suspect]
  4. PREMARIN [Suspect]
  5. PROVERA [Suspect]

REACTIONS (4)
  - BREAST CANCER FEMALE [None]
  - DRUG HYPERSENSITIVITY [None]
  - METASTASES TO LYMPH NODES [None]
  - POSTMASTECTOMY LYMPHOEDEMA SYNDROME [None]
